FAERS Safety Report 8369828-X (Version None)
Quarter: 2012Q1

REPORT INFORMATION
  Report Type: 
  Country: None (occurrence: None)
  Receive Date: 20120323
  Receipt Date: 20111214
  Transmission Date: 20120608
  Serious: Yes (Hospitalization)
  Sender: FDA-Public Use
  Company Number: 163-21880-11113029

PATIENT
  Age: 70 Year
  Sex: Female
  Weight: 72 kg

DRUGS (3)
  1. WARFARIN SODIUM [Concomitant]
  2. REVLIMID [Suspect]
     Indication: MYELODYSPLASTIC SYNDROME
     Dosage: 10 MG, 1 IN 1 D, PO; 5 MG, 1 IN 1 D, PO
     Route: 048
     Dates: start: 20100701
  3. REVLIMID [Suspect]
     Indication: MYELODYSPLASTIC SYNDROME
     Dosage: 10 MG, 1 IN 1 D, PO; 5 MG, 1 IN 1 D, PO
     Route: 048
     Dates: start: 20100506

REACTIONS (3)
  - CONTUSION [None]
  - PULMONARY EMBOLISM [None]
  - RASH [None]
